FAERS Safety Report 10651555 (Version 2)
Quarter: 2014Q4

REPORT INFORMATION
  Report Type: Report from Study
  Country: CA (occurrence: CA)
  Receive Date: 20141215
  Receipt Date: 20141215
  Transmission Date: 20150529
  Serious: Yes (Hospitalization, Other)
  Sender: FDA-Public Use
  Company Number: CA-ABBVIE-14K-028-1312138-00

PATIENT
  Sex: Male

DRUGS (2)
  1. PREDNISONE. [Concomitant]
     Active Substance: PREDNISONE
     Indication: PRODUCT USED FOR UNKNOWN INDICATION
  2. HUMIRA [Suspect]
     Active Substance: ADALIMUMAB
     Indication: CROHN^S DISEASE
     Route: 058
     Dates: start: 20130606

REACTIONS (6)
  - Intestinal fistula [Unknown]
  - Blood albumin decreased [Unknown]
  - Intestinal stenosis [Unknown]
  - Drug effect incomplete [Recovered/Resolved]
  - Crohn^s disease [Unknown]
  - C-reactive protein increased [Unknown]
